FAERS Safety Report 11754819 (Version 1)
Quarter: 2015Q4

REPORT INFORMATION
  Report Type: Spontaneous
  Country: CH (occurrence: None)
  Receive Date: 20151119
  Receipt Date: 20151119
  Transmission Date: 20160304
  Serious: Yes (Other)
  Sender: FDA-Public Use
  Company Number: CH-MDT-ADR-2015-02179

PATIENT
  Age: 61 Year
  Sex: Male

DRUGS (2)
  1. ETHANOL [Suspect]
     Active Substance: ALCOHOL
  2. BACLOFEN. [Suspect]
     Active Substance: BACLOFEN
     Indication: ALCOHOL USE
     Dosage: 100MG B.I.D.

REACTIONS (5)
  - Road traffic accident [None]
  - Poor quality sleep [None]
  - Snoring [None]
  - Sleep apnoea syndrome [None]
  - Somnolence [None]
